FAERS Safety Report 5025973-8 (Version None)
Quarter: 2006Q2

REPORT INFORMATION
  Report Type: 
  Country: None (occurrence: None)
  Receive Date: 20060608
  Receipt Date: 20060530
  Transmission Date: 20061013
  Serious: Yes (Hospitalization)
  Sender: FDA-Public Use
  Company Number: HQWYE365016MAY06

PATIENT
  Age: 65 Year
  Sex: Female

DRUGS (4)
  1. PANTOPRAZOLE SODIUM [Suspect]
     Indication: DYSPEPSIA
     Dosage: 20 MG 1X PER 1 DAY ORAL
     Route: 048
     Dates: start: 20020101, end: 20060501
  2. LIPIDIL [Suspect]
     Indication: DYSLIPIDAEMIA
     Dosage: 160 MG 1X PER 1 DAY ORAL
     Route: 048
  3. TEVETEN [Concomitant]
  4. LEVOTHYROXINE SODIUM [Concomitant]

REACTIONS (2)
  - EYE PAIN [None]
  - VISUAL FIELD DEFECT [None]
